FAERS Safety Report 4799968-3 (Version None)
Quarter: 2005Q4

REPORT INFORMATION
  Report Type: 
  Country: None (occurrence: None)
  Receive Date: 20051012
  Receipt Date: 20051012
  Transmission Date: 20060501
  Serious: Yes (Hospitalization)
  Sender: FDA-Public Use
  Company Number: None

PATIENT
  Sex: Female
  Weight: 59 kg

DRUGS (1)
  1. ZELNORM [Suspect]
     Indication: CONSTIPATION
     Dosage: 6 MG BID G-J TUBE
     Dates: start: 20050817, end: 20050829

REACTIONS (2)
  - INTESTINAL OBSTRUCTION [None]
  - PNEUMATOSIS INTESTINALIS [None]
